FAERS Safety Report 9142910 (Version 2)
Quarter: 2013Q1

REPORT INFORMATION
  Report Type: Spontaneous
  Country: US (occurrence: US)
  Receive Date: 20130306
  Receipt Date: 20130322
  Transmission Date: 20140127
  Serious: No
  Sender: FDA-Public Use
  Company Number: US-PFIZER INC-2013077017

PATIENT
  Age: 87 Year
  Sex: Male
  Weight: 86.62 kg

DRUGS (2)
  1. LIPITOR [Suspect]
     Indication: BLOOD CHOLESTEROL INCREASED
     Dosage: 20 MG, DAILY
     Route: 048
  2. ASPIRIN [Concomitant]
     Dosage: UNK, DAILY

REACTIONS (1)
  - Nasopharyngitis [Recovered/Resolved]
